FAERS Safety Report 15864496 (Version 1)
Quarter: 2019Q1

REPORT INFORMATION
  Report Type: Spontaneous
  Country: US (occurrence: US)
  Receive Date: 20190124
  Receipt Date: 20190124
  Transmission Date: 20190417
  Serious: Yes (Hospitalization)
  Sender: FDA-Public Use
  Company Number: US-SHIRE-US201901787

PATIENT
  Sex: Male
  Weight: 58 kg

DRUGS (1)
  1. GATTEX [Suspect]
     Active Substance: TEDUGLUTIDE\WATER
     Indication: PRODUCT USED FOR UNKNOWN INDICATION
     Dosage: 0.146 (UNKNOWN UNIT), 1X/DAY:QD
     Route: 065
     Dates: start: 20180703, end: 20190117

REACTIONS (1)
  - Therapy non-responder [Unknown]
